FAERS Safety Report 10672253 (Version 2)
Quarter: 2015Q1

REPORT INFORMATION
  Report Type: Spontaneous
  Country: FR (occurrence: FR)
  Receive Date: 20141223
  Receipt Date: 20150106
  Transmission Date: 20150720
  Serious: Yes (Death)
  Sender: FDA-Public Use
  Company Number: FR-SA-2014SA172593

PATIENT
  Age: 47 Year
  Sex: Female

DRUGS (2)
  1. KETEK [Suspect]
     Active Substance: TELITHROMYCIN
     Indication: BRONCHITIS
     Route: 048
     Dates: start: 20141202, end: 20141203
  2. KESTIN [Concomitant]
     Active Substance: EBASTINE
     Dosage: STRENGTH: 10 MG
     Route: 048
     Dates: start: 20141203, end: 20141203

REACTIONS (2)
  - Cardiac arrest [Fatal]
  - Angioedema [Fatal]

NARRATIVE: CASE EVENT DATE: 20141203
